FAERS Safety Report 15011100 (Version 1)
Quarter: 2018Q2

REPORT INFORMATION
  Report Type: Spontaneous
  Country: US (occurrence: US)
  Receive Date: 20180614
  Receipt Date: 20180614
  Transmission Date: 20180711
  Serious: Yes (Other)
  Sender: FDA-Public Use
  Company Number: US-SUPERNUS PHARMACEUTICALS, INC.-2018SUP00193

PATIENT
  Sex: Female
  Weight: 58.5 kg

DRUGS (10)
  1. ZYRTEC [Concomitant]
     Active Substance: CETIRIZINE HYDROCHLORIDE
     Dosage: UNK
     Route: 048
     Dates: start: 20170714
  2. MIDODRINE HCL [Suspect]
     Active Substance: MIDODRINE HYDROCHLORIDE
     Dosage: 5 MG, 4X/DAY
     Route: 048
     Dates: start: 20170714
  3. INDOMETHACIN. [Concomitant]
     Active Substance: INDOMETHACIN
     Dosage: UNK
     Route: 048
     Dates: start: 20171107
  4. CITALOPRAM HYDROBROMIDE. [Concomitant]
     Active Substance: CITALOPRAM HYDROBROMIDE
     Dosage: 10 MG, 1X/DAY
     Route: 048
     Dates: start: 20170404
  5. MIRALAX [Concomitant]
     Active Substance: POLYETHYLENE GLYCOL 3350
     Dosage: 1 DOSAGE UNITS, 1X/DAY MIX IN 8 OUNCES OF LIQUID AND DRINK
     Route: 048
     Dates: start: 20180328
  6. TROKENDI XR [Suspect]
     Active Substance: TOPIRAMATE
     Indication: HEADACHE
     Dosage: 150 MG, 1X/DAY AT BEDTIME
     Dates: start: 20171024
  7. NORTHERA [Suspect]
     Active Substance: DROXIDOPA
     Dosage: 600 MG, 3X/DAY, DO NOT TAKE IN THE AFTERNOON WHEN BLOOD PRESSURE ELEVATED
     Route: 048
     Dates: start: 20180328
  8. CAMBIA [Concomitant]
     Active Substance: DICLOFENAC POTASSIUM
     Dosage: UNK DOSAGE UNITS, 1X/DAY;^MIXED IN WATER, EVERY 24 HOURS AS NEEDED^
     Route: 048
     Dates: start: 20171024
  9. NORTHERA [Suspect]
     Active Substance: DROXIDOPA
     Dosage: 600 MG, 3X/DAY
     Route: 048
     Dates: start: 20180109, end: 20180328
  10. OMEPRAZOLE. [Concomitant]
     Active Substance: OMEPRAZOLE
     Dosage: UNK
     Route: 048
     Dates: start: 20180328

REACTIONS (31)
  - Hypotension [Unknown]
  - Balance disorder [Unknown]
  - Sensory disturbance [Unknown]
  - Dysstasia [Unknown]
  - Neuralgia [Unknown]
  - Early satiety [Unknown]
  - Drug ineffective for unapproved indication [Unknown]
  - Disturbance in attention [Unknown]
  - Blood pressure increased [Unknown]
  - Headache [Unknown]
  - Muscular weakness [Unknown]
  - Initial insomnia [Unknown]
  - Vision blurred [Unknown]
  - Paraesthesia [Unknown]
  - Memory impairment [Unknown]
  - Head discomfort [Unknown]
  - Terminal insomnia [Unknown]
  - Pain [Unknown]
  - Middle insomnia [Unknown]
  - Impaired gastric emptying [Unknown]
  - Migraine [Unknown]
  - Blood pressure fluctuation [Unknown]
  - Feeling abnormal [Unknown]
  - Hypokinesia [Unknown]
  - Bowel movement irregularity [Unknown]
  - Cognitive disorder [Unknown]
  - Fatigue [Unknown]
  - Gastrointestinal disorder [Unknown]
  - Dizziness [Unknown]
  - Hypoaesthesia [Unknown]
  - Gait disturbance [Unknown]
